FAERS Safety Report 20882495 (Version 3)
Quarter: 2025Q1

REPORT INFORMATION
  Report Type: Spontaneous
  Country: US (occurrence: US)
  Receive Date: 20220527
  Receipt Date: 20250113
  Transmission Date: 20250409
  Serious: Yes (Other)
  Sender: PFIZER
  Company Number: US-PFIZER INC-202200765378

PATIENT
  Age: 68 Year
  Sex: Female
  Weight: 90.72 kg

DRUGS (5)
  1. ESTRING [Suspect]
     Active Substance: ESTRADIOL
     Indication: Menopausal symptoms
  2. ESTRING [Suspect]
     Active Substance: ESTRADIOL
     Indication: Atrophic vulvovaginitis
  3. ESTRING [Suspect]
     Active Substance: ESTRADIOL
     Indication: Dyspareunia
  4. ESTRING [Suspect]
     Active Substance: ESTRADIOL
     Indication: Cystocele
  5. PROMETRIUM [Concomitant]
     Active Substance: PROGESTERONE

REACTIONS (5)
  - Eye operation [Unknown]
  - Vision blurred [Unknown]
  - Therapeutic response unexpected [Unknown]
  - Withdrawal syndrome [Unknown]
  - Malaise [Unknown]

NARRATIVE: CASE EVENT DATE: 20230101
